FAERS Safety Report 13080494 (Version 1)
Quarter: 2017Q1

REPORT INFORMATION
  Report Type: Spontaneous
  Country: US (occurrence: US)
  Receive Date: 20170103
  Receipt Date: 20170103
  Transmission Date: 20170428
  Serious: Yes (Other)
  Sender: FDA-Public Use
  Company Number: US-ELI_LILLY_AND_COMPANY-US201612009929

PATIENT
  Age: 43 Year
  Sex: Female

DRUGS (2)
  1. HUMALOG [Suspect]
     Active Substance: INSULIN LISPRO
     Indication: TYPE 2 DIABETES MELLITUS
     Dosage: 7 U, TID
     Route: 065
     Dates: start: 201606
  2. HUMULIN N [Suspect]
     Active Substance: INSULIN HUMAN
     Indication: TYPE 2 DIABETES MELLITUS
     Dosage: 9 U, QD
     Route: 065
     Dates: start: 201606

REACTIONS (4)
  - Drug dose omission [Unknown]
  - Headache [Unknown]
  - Myocardial infarction [Recovered/Resolved]
  - Sluggishness [Unknown]

NARRATIVE: CASE EVENT DATE: 201612
